FAERS Safety Report 15344028 (Version 2)
Quarter: 2019Q1

REPORT INFORMATION
  Report Type: Report from Study
  Country: US (occurrence: US)
  Receive Date: 20180903
  Receipt Date: 20190103
  Transmission Date: 20190417
  Serious: Yes (Hospitalization)
  Sender: FDA-Public Use
  Company Number: PHEH2018US035067

PATIENT
  Sex: Female

DRUGS (1)
  1. ENTRESTO [Suspect]
     Active Substance: SACUBITRIL\VALSARTAN
     Indication: PRODUCT USED FOR UNKNOWN INDICATION
     Route: 048

REACTIONS (8)
  - Pallor [Unknown]
  - Fatigue [Unknown]
  - Fall [Unknown]
  - Scratch [Unknown]
  - Vomiting [Unknown]
  - Vertigo [Unknown]
  - Dizziness [Unknown]
  - Pain [Unknown]
